FAERS Safety Report 11422867 (Version 1)
Quarter: 2015Q3

REPORT INFORMATION
  Report Type: Spontaneous
  Country: ES (occurrence: ES)
  Receive Date: 20150827
  Receipt Date: 20150827
  Transmission Date: 20151125
  Serious: Yes (Hospitalization)
  Sender: FDA-Public Use
  Company Number: ES-JNJFOC-20150818664

PATIENT
  Age: 83 Year
  Sex: Female

DRUGS (7)
  1. ENALAPRIL [Suspect]
     Active Substance: ENALAPRIL
     Indication: HYPERTENSION
     Route: 048
     Dates: start: 20140728, end: 20141001
  2. ALENDRONATE SODIUM. [Concomitant]
     Active Substance: ALENDRONATE SODIUM
     Indication: PRODUCT USED FOR UNKNOWN INDICATION
     Route: 048
     Dates: start: 20140728
  3. ZALDIAR [Suspect]
     Active Substance: ACETAMINOPHEN\TRAMADOL HYDROCHLORIDE
     Indication: LUMBAR VERTEBRAL FRACTURE
     Route: 048
     Dates: start: 20140625, end: 20141001
  4. FUROSEMIDE. [Suspect]
     Active Substance: FUROSEMIDE
     Indication: CARDIAC FAILURE CONGESTIVE
     Route: 048
     Dates: start: 20140728, end: 20141001
  5. CITALOPRAM [Suspect]
     Active Substance: CITALOPRAM HYDROBROMIDE
     Indication: DEPRESSION
     Route: 048
     Dates: start: 20140728, end: 20141001
  6. DIAZEPAM. [Suspect]
     Active Substance: DIAZEPAM
     Indication: LUMBAR VERTEBRAL FRACTURE
     Route: 048
     Dates: start: 20140625, end: 20140701
  7. COLECALCIFEROL [Concomitant]
     Active Substance: CHOLECALCIFEROL
     Indication: OSTEOPOROTIC FRACTURE
     Route: 048
     Dates: start: 20140728

REACTIONS (4)
  - Fall [Recovered/Resolved]
  - Muscular weakness [Recovered/Resolved]
  - Acute kidney injury [Recovered/Resolved]
  - Decreased appetite [Recovered/Resolved]

NARRATIVE: CASE EVENT DATE: 201409
